FAERS Safety Report 17562290 (Version 4)
Quarter: 2021Q4

REPORT INFORMATION
  Report Type: Spontaneous
  Country: NL (occurrence: NL)
  Receive Date: 20200319
  Receipt Date: 20211129
  Transmission Date: 20220304
  Serious: Yes (Other)
  Sender: FDA-Public Use
  Company Number: NL-BEH-2020113499

PATIENT
  Age: 27 Year
  Sex: Female

DRUGS (10)
  1. TRANEXAMIC ACID [Suspect]
     Active Substance: TRANEXAMIC ACID
     Indication: Vaginal haemorrhage
     Dosage: ADMINISTERED AT 1G (17MG/KG) AT 40+1 WEEK OF PREGNANCY
     Route: 065
  2. TRANEXAMIC ACID [Suspect]
     Active Substance: TRANEXAMIC ACID
     Indication: Factor I deficiency
     Dosage: 3 GRAM, QD/1 GRAM, TID (EVERY 8 HOURS)
     Route: 065
  3. TRANEXAMIC ACID [Suspect]
     Active Substance: TRANEXAMIC ACID
     Indication: Postpartum haemorrhage
     Dosage: 1 GRAM
     Route: 065
  4. FIBRINOGEN HUMAN [Suspect]
     Active Substance: FIBRINOGEN HUMAN
     Indication: Factor I deficiency
     Dosage: 3 GRAM (50MG/KG) EVERY 4 DAYS
     Route: 065
  5. FIBRINOGEN HUMAN [Suspect]
     Active Substance: FIBRINOGEN HUMAN
     Indication: Vaginal haemorrhage
     Dosage: 3 GRAM (50MG/KG) EVERY 3 DAYS FOR 1 WEEK
     Route: 065
  6. FIBRINOGEN HUMAN [Suspect]
     Active Substance: FIBRINOGEN HUMAN
     Indication: Prophylaxis
     Dosage: 3 GRAM, QOD
     Route: 065
  7. FIBRINOGEN HUMAN [Suspect]
     Active Substance: FIBRINOGEN HUMAN
     Dosage: 2 GRAM (33MG/KG) POST-LABOUR
     Route: 065
  8. FIBRINOGEN HUMAN [Suspect]
     Active Substance: FIBRINOGEN HUMAN
     Dosage: 2 GRAM (33MG/KG) DURING LABOUR
     Route: 065
  9. OXYTOCIN [Concomitant]
     Active Substance: OXYTOCIN
     Indication: Postpartum haemorrhage
     Dosage: UNK
     Route: 065
  10. MISOPROSTOL [Concomitant]
     Active Substance: MISOPROSTOL
     Indication: Postpartum haemorrhage
     Dosage: UNK
     Route: 065

REACTIONS (9)
  - Thrombophlebitis [Unknown]
  - Blood loss anaemia [Unknown]
  - Deep vein thrombosis [Recovering/Resolving]
  - Postpartum haemorrhage [Unknown]
  - Normal newborn [Recovered/Resolved]
  - No adverse event [Unknown]
  - Venous thrombosis [Unknown]
  - Maternal exposure during pregnancy [Recovered/Resolved]
  - Product use in unapproved indication [Unknown]
